FAERS Safety Report 8865845 (Version 3)
Quarter: 2013Q4

REPORT INFORMATION
  Report Type: Spontaneous
  Country: GB (occurrence: GB)
  Receive Date: 20121025
  Receipt Date: 20131107
  Transmission Date: 20140711
  Serious: Yes (Other)
  Sender: FDA-Public Use
  Company Number: PHHY2012GB092940

PATIENT
  Age: 32 Year
  Sex: Male
  Weight: 94 kg

DRUGS (2)
  1. DOXYCYCLINE [Suspect]
     Indication: PROSTATITIS
     Dosage: 100 MG, BID
     Route: 048
     Dates: start: 20120612, end: 20120626
  2. SERTRALINE [Concomitant]

REACTIONS (7)
  - Obsessive-compulsive disorder [Not Recovered/Not Resolved]
  - Anxiety [Not Recovered/Not Resolved]
  - Paranoia [Not Recovered/Not Resolved]
  - Panic attack [Not Recovered/Not Resolved]
  - Flashback [Not Recovered/Not Resolved]
  - Impaired work ability [Unknown]
  - Condition aggravated [Not Recovered/Not Resolved]
